FAERS Safety Report 13075172 (Version 1)
Quarter: 2016Q4

REPORT INFORMATION
  Report Type: Spontaneous
  Country: TR (occurrence: TR)
  Receive Date: 20161230
  Receipt Date: 20161230
  Transmission Date: 20170207
  Serious: Yes (Hospitalization)
  Sender: FDA-Public Use
  Company Number: PHHY2016TR180009

PATIENT
  Age: 77 Year
  Sex: Male

DRUGS (1)
  1. SANDIMMUN NEORAL [Suspect]
     Active Substance: CYCLOSPORINE
     Indication: RENAL FAILURE
     Dosage: 100 MG, UNK
     Route: 048

REACTIONS (3)
  - Product use issue [Unknown]
  - Respiratory failure [Unknown]
  - Weight decreased [Unknown]
